FAERS Safety Report 20317555 (Version 1)
Quarter: 2022Q1

REPORT INFORMATION
  Report Type: Spontaneous
  Country: GB (occurrence: GB)
  Receive Date: 20220110
  Receipt Date: 20220110
  Transmission Date: 20220423
  Serious: Yes (Other)
  Sender: FDA-Public Use
  Company Number: GB-OTSUKA-2022_000129

PATIENT
  Age: 23 Year

DRUGS (1)
  1. ABILIFY MAINTENA [Suspect]
     Active Substance: ARIPIPRAZOLE
     Indication: Product used for unknown indication
     Dosage: UNK
     Route: 065

REACTIONS (7)
  - Intellectual disability [Unknown]
  - Mental impairment [Unknown]
  - Schizophrenia [Unknown]
  - Mental disability [Unknown]
  - Mental disorder [Unknown]
  - Speech disorder [Unknown]
  - Economic problem [Unknown]
